FAERS Safety Report 16118266 (Version 1)
Quarter: 2019Q1

REPORT INFORMATION
  Report Type: Spontaneous
  Country: GB (occurrence: GB)
  Receive Date: 20190326
  Receipt Date: 20190326
  Transmission Date: 20190418
  Serious: Yes (Hospitalization)
  Sender: FDA-Public Use
  Company Number: GB-TEVA-2019-GB-1028248

PATIENT
  Age: 11 Year
  Sex: Male
  Weight: 26 kg

DRUGS (5)
  1. MOVICOL [Concomitant]
     Active Substance: POLYETHYLENE GLYCOL 3350\POTASSIUM CHLORIDE\SODIUM BICARBONATE\SODIUM CHLORIDE
  2. BACLOFEN. [Concomitant]
     Active Substance: BACLOFEN
  3. DIAZEPAM. [Concomitant]
     Active Substance: DIAZEPAM
  4. CARBAMAZEPINE. [Suspect]
     Active Substance: CARBAMAZEPINE
     Indication: EPILEPSY
     Dosage: 6 ML DAILY; 60MG (3ML) TWICE A DAY FOR 7 DAYS THEN 120MG (6ML) TWICE A DAY FOR 3 WEEKS
     Route: 048
     Dates: start: 20190222, end: 20190228
  5. SODIUM VALPROATE [Concomitant]
     Active Substance: VALPROATE SODIUM

REACTIONS (4)
  - Lip swelling [Not Recovered/Not Resolved]
  - Rash maculo-papular [Not Recovered/Not Resolved]
  - Erythema [Not Recovered/Not Resolved]
  - Alanine aminotransferase increased [Unknown]

NARRATIVE: CASE EVENT DATE: 20190224
